FAERS Safety Report 10008713 (Version 2)
Quarter: 2014Q1

REPORT INFORMATION
  Report Type: Spontaneous
  Country: US (occurrence: US)
  Receive Date: 20140312
  Receipt Date: 20140312
  Transmission Date: 20141002
  Serious: No
  Sender: FDA-Public Use
  Company Number: US-INCYTE CORPORATION-2012IN000410

PATIENT
  Sex: Female
  Weight: 84.81 kg

DRUGS (2)
  1. JAKAFI [Suspect]
     Indication: MYELOFIBROSIS
     Dosage: 25 MG, BID
     Route: 048
     Dates: start: 20120131
  2. JAKAFI [Suspect]
     Indication: BLOOD DISORDER
     Dosage: 15 MG, BID
     Route: 048

REACTIONS (2)
  - Muscular weakness [Unknown]
  - Haemoglobin decreased [Unknown]
